FAERS Safety Report 9262030 (Version 5)
Quarter: 2015Q2

REPORT INFORMATION
  Report Type: Spontaneous
  Country: US (occurrence: US)
  Receive Date: 20130429
  Receipt Date: 20150526
  Transmission Date: 20150821
  Serious: Yes (Other)
  Sender: FDA-Public Use
  Company Number: US-009507513-1304USA016959

PATIENT
  Sex: Male
  Weight: 110.66 kg

DRUGS (6)
  1. PROPECIA [Suspect]
     Active Substance: FINASTERIDE
     Indication: ALOPECIA
     Dosage: 1 MG, QD
     Route: 048
     Dates: start: 200404, end: 20050505
  2. FINASTERIDE. [Suspect]
     Active Substance: FINASTERIDE
     Dosage: 5 MG, UNK
     Route: 048
  3. PROPECIA [Suspect]
     Active Substance: FINASTERIDE
     Dosage: 1 MG, UNK
     Route: 048
     Dates: start: 20110413, end: 20120912
  4. PROSCAR [Suspect]
     Active Substance: FINASTERIDE
     Dosage: UNK
     Route: 048
  5. FINASTERIDE. [Suspect]
     Active Substance: FINASTERIDE
     Dosage: 1 MG, UNK
     Route: 048
  6. PROPECIA [Suspect]
     Active Substance: FINASTERIDE
     Dosage: 1 MG, UNK
     Route: 048
     Dates: start: 20080104

REACTIONS (20)
  - Substance-induced psychotic disorder [Unknown]
  - Fall [Unknown]
  - Hypertension [Unknown]
  - Sexual dysfunction [Not Recovered/Not Resolved]
  - Hypogonadism [Unknown]
  - Haematocrit increased [Unknown]
  - Androgen deficiency [Unknown]
  - Suicide attempt [Unknown]
  - Testicular operation [Unknown]
  - Blood testosterone decreased [Unknown]
  - Anxiety [Unknown]
  - Borderline personality disorder [Unknown]
  - Insomnia [Unknown]
  - Nodule [Unknown]
  - Libido decreased [Unknown]
  - Weight increased [Unknown]
  - Haemorrhoid operation [Unknown]
  - Polycythaemia [Unknown]
  - Depression [Not Recovered/Not Resolved]
  - Erectile dysfunction [Not Recovered/Not Resolved]

NARRATIVE: CASE EVENT DATE: 2004
